FAERS Safety Report 5845646-9 (Version None)
Quarter: 2008Q3

REPORT INFORMATION
  Report Type: 
  Country: None (occurrence: None)
  Receive Date: 20080814
  Receipt Date: 20080804
  Transmission Date: 20090109
  Serious: Yes (Death)
  Sender: FDA-Public Use
  Company Number: GB-ABBOTT-08P-167-0468515-00

PATIENT
  Age: 54 Year
  Sex: Male

DRUGS (3)
  1. VALPROATE SODIUM [Suspect]
     Indication: DRUG USE FOR UNKNOWN INDICATION
     Route: 048
  2. CLOZAPINE [Suspect]
     Indication: SCHIZOPHRENIA
     Route: 048
     Dates: start: 20041115, end: 20061219
  3. OMEPRAZOLE [Concomitant]
     Indication: OESOPHAGITIS
     Route: 065

REACTIONS (2)
  - ARTERIOSCLEROSIS CORONARY ARTERY [None]
  - LEFT VENTRICULAR FAILURE [None]
